FAERS Safety Report 9585488 (Version 2)
Quarter: 2013Q4

REPORT INFORMATION
  Report Type: Report from Study
  Country: FR (occurrence: FR)
  Receive Date: 20131003
  Receipt Date: 20131022
  Transmission Date: 20140711
  Serious: Yes (Hospitalization)
  Sender: FDA-Public Use
  Company Number: FR-ROCHE-1283492

PATIENT
  Age: 25 Year
  Sex: Female
  Weight: 63 kg

DRUGS (6)
  1. RITUXIMAB [Suspect]
     Indication: DIFFUSE LARGE B-CELL LYMPHOMA
     Dosage: LAST DOSE PRIOR TO SAE: 21/AUG/2013
     Route: 065
     Dates: start: 20130711
  2. DOXORUBICIN [Suspect]
     Indication: LYMPHOMA
     Route: 065
     Dates: start: 20130711, end: 20130821
  3. CYCLOPHOSPHAMIDE [Suspect]
     Indication: LYMPHOMA
     Route: 065
     Dates: start: 20130711, end: 20130821
  4. VINDESINE [Suspect]
     Indication: LYMPHOMA
     Route: 065
     Dates: start: 20130711, end: 20130821
  5. BLEOMYCIN [Suspect]
     Indication: LYMPHOMA
     Route: 065
     Dates: start: 20130711, end: 20130821
  6. PREDNISONE [Suspect]
     Indication: LYMPHOMA
     Route: 065
     Dates: start: 20130711, end: 20130821

REACTIONS (1)
  - Mucosal inflammation [Recovered/Resolved]
